FAERS Safety Report 6327811-X (Version None)
Quarter: 2009Q3

REPORT INFORMATION
  Report Type: 
  Country: None (occurrence: None)
  Receive Date: 20090824
  Receipt Date: 20090821
  Transmission Date: 20100115
  Serious: Yes (Other)
  Sender: FDA-Public Use
  Company Number: 1000007849

PATIENT
  Age: 59 Year
  Sex: Female

DRUGS (7)
  1. SAVELLA [Suspect]
     Indication: FIBROMYALGIA
     Dosage: 12.5 MG (12.5 MG, 1 IN 1 D),ORAL;  25 MG (12.5 MG,2 IN 1 D),ORAL;  50 MG (25 MG,2 IN 1 D),0RAL
     Route: 048
     Dates: start: 20090624, end: 20090624
  2. SAVELLA [Suspect]
     Indication: FIBROMYALGIA
     Dosage: 12.5 MG (12.5 MG, 1 IN 1 D),ORAL;  25 MG (12.5 MG,2 IN 1 D),ORAL;  50 MG (25 MG,2 IN 1 D),0RAL
     Route: 048
     Dates: start: 20090625, end: 20090626
  3. SAVELLA [Suspect]
     Indication: FIBROMYALGIA
     Dosage: 12.5 MG (12.5 MG, 1 IN 1 D),ORAL;  25 MG (12.5 MG,2 IN 1 D),ORAL;  50 MG (25 MG,2 IN 1 D),0RAL
     Route: 048
     Dates: start: 20090627, end: 20090630
  4. SAVELLA [Suspect]
     Indication: FIBROMYALGIA
     Dosage: 100 MG (50 MG, 2 IN 1 D), ORAL
     Route: 048
     Dates: start: 20090701, end: 20090720
  5. TOPAMAX [Concomitant]
  6. DYAZIDE [Concomitant]
  7. AMBIEN [Concomitant]

REACTIONS (3)
  - ELECTROCARDIOGRAM QT PROLONGED [None]
  - FATIGUE [None]
  - SINUS TACHYCARDIA [None]
